FAERS Safety Report 9593410 (Version 2)
Quarter: 2013Q4

REPORT INFORMATION
  Report Type: Spontaneous
  Country: DE (occurrence: DE)
  Receive Date: 20131004
  Receipt Date: 20131004
  Transmission Date: 20140711
  Serious: Yes (Life-Threatening, Hospitalization, Other)
  Sender: FDA-Public Use
  Company Number: DE-009507513-1309DEU005651

PATIENT
  Age: 53 Year
  Sex: Female
  Weight: 50 kg

DRUGS (5)
  1. VICTRELIS [Suspect]
     Indication: HEPATITIS C
     Dosage: 800 MG, TID
     Route: 048
     Dates: start: 20130326, end: 20130820
  2. REBETOL [Suspect]
     Indication: HEPATITIS C
     Dosage: 800 MG, UNK
     Route: 048
     Dates: start: 20130226
  3. REBETOL [Suspect]
     Dosage: REDUCED TO 400MG
     Route: 048
     Dates: start: 20130503
  4. REBETOL [Suspect]
     Dosage: REDUCED TO 200MG
     Route: 048
     Dates: start: 20130531, end: 20130820
  5. PEGASYS [Suspect]
     Indication: HEPATITIS C
     Dosage: 180 MICROGRAM, QW
     Dates: start: 20130226, end: 20130820

REACTIONS (3)
  - Leukopenia [Not Recovered/Not Resolved]
  - Haemolytic anaemia [Recovering/Resolving]
  - Thrombocytopenia [Not Recovered/Not Resolved]
